FAERS Safety Report 7788048-0 (Version None)
Quarter: 2011Q3

REPORT INFORMATION
  Report Type: 
  Country: None (occurrence: None)
  Receive Date: 20110927
  Receipt Date: 20110916
  Transmission Date: 20111222
  Serious: Yes (Hospitalization)
  Sender: FDA-Public Use
  Company Number: B0748943A

PATIENT
  Age: 66 Year
  Sex: Female

DRUGS (6)
  1. PAROXETINE HYDROCHLORIDE [Suspect]
     Indication: PRODUCT USED FOR UNKNOWN INDICATION
  2. HALOPERIDOL [Concomitant]
  3. TRAMADOL HCL [Concomitant]
  4. TRAZODONE HYDROCHLORIDE [Concomitant]
  5. MIRTAZAPINE [Suspect]
     Indication: PARANOIA
  6. IMIPRAMINE [Concomitant]

REACTIONS (9)
  - CONFUSIONAL STATE [None]
  - HYPERTONIA [None]
  - MOBILITY DECREASED [None]
  - TREMOR [None]
  - CIRCADIAN RHYTHM SLEEP DISORDER [None]
  - SEROTONIN SYNDROME [None]
  - HYPOPHAGIA [None]
  - HYPERREFLEXIA [None]
  - WHITE BLOOD CELL COUNT INCREASED [None]
